FAERS Safety Report 24531542 (Version 1)
Quarter: 2024Q4

REPORT INFORMATION
  Report Type: Report from Study
  Country: US (occurrence: US)
  Receive Date: 20241022
  Receipt Date: 20241022
  Transmission Date: 20250115
  Serious: No
  Sender: ROCHE
  Company Number: US-ROCHE-3490472

PATIENT

DRUGS (2)
  1. DORNASE ALFA [Suspect]
     Active Substance: DORNASE ALFA
     Indication: Product used for unknown indication
     Route: 064
  2. DORNASE ALFA [Suspect]
     Active Substance: DORNASE ALFA
     Indication: Product used for unknown indication
     Route: 063

REACTIONS (5)
  - Premature baby [Unknown]
  - Apgar score low [Unknown]
  - Low birth weight baby [Unknown]
  - Exposure via breast milk [Unknown]
  - Foetal exposure during pregnancy [Unknown]
